FAERS Safety Report 6419351-4 (Version None)
Quarter: 2009Q4

REPORT INFORMATION
  Report Type: 
  Country: None (occurrence: None)
  Receive Date: 20091029
  Receipt Date: 20091019
  Transmission Date: 20100525
  Serious: Yes (Other)
  Sender: FDA-Public Use
  Company Number: US-JNJFOC-20091006354

PATIENT
  Age: 8 Year
  Sex: Female

DRUGS (1)
  1. REMICADE [Suspect]
     Indication: CROHN'S DISEASE
     Dosage: TREATED FOR 4 YEARS
     Route: 042

REACTIONS (2)
  - HEPATIC ENZYME INCREASED [None]
  - PULMONARY TUBERCULOSIS [None]
